FAERS Safety Report 8988476 (Version 1)
Quarter: 2012Q4

REPORT INFORMATION
  Report Type: Spontaneous
  Country: US (occurrence: None)
  Receive Date: 20121224
  Receipt Date: 20121224
  Transmission Date: 20130627
  Serious: No
  Sender: FDA-Public Use
  Company Number: None

PATIENT
  Age: 61 Year
  Sex: Female
  Weight: 79.38 kg

DRUGS (1)
  1. CIPROFLOXACIN [Suspect]
     Indication: URINARY TRACT INFECTION
     Dosage: 1 tablet Twice daily po
     Route: 048
     Dates: start: 20101210, end: 20101224

REACTIONS (6)
  - Pain [None]
  - Groin pain [None]
  - Tendon disorder [None]
  - Muscle rupture [None]
  - Wheelchair user [None]
  - Walking aid user [None]
